FAERS Safety Report 4504810-1 (Version None)
Quarter: 2004Q3

REPORT INFORMATION
  Report Type: 
  Country: None (occurrence: None)
  Receive Date: 20040927
  Receipt Date: 20040707
  Transmission Date: 20050211
  Serious: No
  Sender: FDA-Public Use
  Company Number: USA040772049

PATIENT
  Age: 26 Year
  Sex: Female

DRUGS (3)
  1. STRATTERA [Suspect]
     Dates: start: 20040101
  2. CELEXA [Concomitant]
  3. CONCERTA [Concomitant]

REACTIONS (1)
  - DELUSION [None]
